FAERS Safety Report 11377107 (Version 2)
Quarter: 2015Q4

REPORT INFORMATION
  Report Type: Report from Study
  Country: US (occurrence: US)
  Receive Date: 20150813
  Receipt Date: 20151104
  Transmission Date: 20160304
  Serious: Yes (Hospitalization)
  Sender: FDA-Public Use
  Company Number: US-B.I. PHARMACEUTICALS,INC./RIDGEFIELD-2015-BI-43119BI

PATIENT
  Sex: Female

DRUGS (1)
  1. GILOTRIF [Suspect]
     Active Substance: AFATINIB
     Indication: LUNG NEOPLASM MALIGNANT
     Dosage: 40 MG
     Route: 048
     Dates: start: 20150711

REACTIONS (9)
  - Gastrointestinal disorder [Unknown]
  - Tooth loss [Unknown]
  - Oral pain [Not Recovered/Not Resolved]
  - Pleural effusion [Unknown]
  - Diarrhoea [Unknown]
  - Device related infection [Not Recovered/Not Resolved]
  - Stomatitis [Not Recovered/Not Resolved]
  - Headache [Unknown]
  - Drug ineffective [Unknown]
